FAERS Safety Report 8444166-5 (Version None)
Quarter: 2012Q2

REPORT INFORMATION
  Report Type: 
  Country: None (occurrence: None)
  Receive Date: 20120323
  Receipt Date: 20110520
  Transmission Date: 20120825
  Serious: Yes (Hospitalization)
  Sender: FDA-Public Use
  Company Number: 163-21880-11052793

PATIENT
  Age: 69 Year
  Sex: Male

DRUGS (1)
  1. REVLIMID [Suspect]
     Indication: MULTIPLE MYELOMA
     Dosage: 15 MG, DAILY FOR 21 WEEKS ON; 1 WEEK OFF, PO
     Route: 048
     Dates: start: 20110401, end: 20110101

REACTIONS (2)
  - THROMBOSIS [None]
  - BACTERAEMIA [None]
